FAERS Safety Report 14477205 (Version 1)
Quarter: 2018Q1

REPORT INFORMATION
  Report Type: Report from Study
  Country: US (occurrence: US)
  Receive Date: 20180201
  Receipt Date: 20180201
  Transmission Date: 20180509
  Serious: No
  Sender: FDA-Public Use
  Company Number: US-EXELIXIS-CABO-17011222

PATIENT
  Sex: Female

DRUGS (5)
  1. ATENOLOL. [Concomitant]
     Active Substance: ATENOLOL
  2. VALSARTAN. [Concomitant]
     Active Substance: VALSARTAN
  3. HYDROCODONE [Concomitant]
     Active Substance: HYDROCODONE
  4. CABOMETYX [Suspect]
     Active Substance: CABOZANTINIB S-MALATE
     Indication: RENAL CANCER
     Dosage: 60 MG, QD
     Route: 048
     Dates: start: 20171013
  5. GAVILYTE G [Concomitant]
     Active Substance: POLYETHYLENE GLYCOL 3350\POTASSIUM CHLORIDE\SODIUM BICARBONATE\SODIUM CHLORIDE\SODIUM SULFATE ANHYDROUS

REACTIONS (5)
  - Tooth infection [Unknown]
  - Pruritus [Not Recovered/Not Resolved]
  - Blister [Unknown]
  - Upper respiratory tract infection [Unknown]
  - Rash papular [Not Recovered/Not Resolved]
